FAERS Safety Report 8116506 (Version 3)
Quarter: 2013Q4

REPORT INFORMATION
  Report Type: Report from Study
  Country: US (occurrence: US)
  Receive Date: 20110823
  Receipt Date: 20131108
  Transmission Date: 20140711
  Serious: Yes (Other)
  Sender: FDA-Public Use
  Company Number: US-MERCK-2011SP038450

PATIENT
  Age: 1 Day
  Sex: Male
  Weight: 2.95 kg

DRUGS (2)
  1. MK-4031 [Suspect]
     Indication: EXPOSURE DURING PREGNANCY
     Dosage: UNK UNK, UNKNOWN
     Route: 064
  2. RIBAVIRIN [Suspect]
     Indication: EXPOSURE DURING PREGNANCY
     Dosage: UNK UNK, UNKNOWN
     Route: 064

REACTIONS (4)
  - Cyanosis neonatal [Unknown]
  - Respiratory disorder neonatal [Unknown]
  - Streptococcus test positive [Unknown]
  - Foetal exposure during pregnancy [Unknown]
